FAERS Safety Report 8104555-5 (Version None)
Quarter: 2012Q1

REPORT INFORMATION
  Report Type: 
  Country: None (occurrence: None)
  Receive Date: 20120130
  Receipt Date: 20120123
  Transmission Date: 20120608
  Serious: Yes (Hospitalization)
  Sender: FDA-Public Use
  Company Number: PHHY2012AR006237

PATIENT
  Sex: Male

DRUGS (2)
  1. DIOVAN [Suspect]
     Indication: HYPERTENSION
  2. DIOVAN [Suspect]
     Indication: CAROTID ARTERIOSCLEROSIS
     Dosage: 160 MG, DAILY
     Dates: start: 20110101, end: 20120108

REACTIONS (1)
  - TRANSIENT ISCHAEMIC ATTACK [None]
